FAERS Safety Report 6301465-0 (Version None)
Quarter: 2009Q3

REPORT INFORMATION
  Report Type: 
  Country: None (occurrence: None)
  Receive Date: 20090807
  Receipt Date: 20090803
  Transmission Date: 20100115
  Serious: Yes (Death, Hospitalization, Disabling, Congenital Anomaly)
  Sender: FDA-Public Use
  Company Number: A0752484A

PATIENT
  Sex: Male
  Weight: 3.2 kg

DRUGS (2)
  1. PAXIL [Suspect]
     Indication: DRUG USE FOR UNKNOWN INDICATION
  2. SLEEPING MEDICATION [Concomitant]

REACTIONS (11)
  - ATRIAL SEPTAL DEFECT [None]
  - CARDIAC FAILURE CONGESTIVE [None]
  - CEREBRAL ATROPHY [None]
  - CONGENITAL CARDIOVASCULAR ANOMALY [None]
  - DEXTROCARDIA [None]
  - DRUG EXPOSURE DURING PREGNANCY [None]
  - HEART DISEASE CONGENITAL [None]
  - HYPOSPADIAS [None]
  - NERVOUS SYSTEM DISORDER [None]
  - RESPIRATORY ARREST [None]
  - VENTRICULAR SEPTAL DEFECT [None]
